FAERS Safety Report 24708613 (Version 3)
Quarter: 2025Q3

REPORT INFORMATION
  Report Type: Spontaneous
  Country: JP (occurrence: JP)
  Receive Date: 20241207
  Receipt Date: 20250809
  Transmission Date: 20251021
  Serious: Yes (Other)
  Sender: ALEXION PHARMACEUTICALS
  Company Number: JP-ASTRAZENECA-202412GLO002376JP

PATIENT
  Age: 66 Year
  Sex: Female

DRUGS (1)
  1. OSIMERTINIB [Suspect]
     Active Substance: OSIMERTINIB
     Indication: Lung adenocarcinoma stage IV
     Route: 065

REACTIONS (4)
  - Drug resistance [Unknown]
  - Malignant neoplasm progression [Unknown]
  - Malignant transformation [Unknown]
  - Acquired gene mutation [Unknown]
